FAERS Safety Report 10973587 (Version 3)
Quarter: 2015Q3

REPORT INFORMATION
  Report Type: Spontaneous
  Country: US (occurrence: US)
  Receive Date: 20150401
  Receipt Date: 20150807
  Transmission Date: 20151125
  Serious: Yes (Other)
  Sender: FDA-Public Use
  Company Number: US-ASTRAZENECA-2014SE56435

PATIENT
  Age: 20242 Day
  Sex: Female
  Weight: 90.2 kg

DRUGS (37)
  1. JANUVIA [Suspect]
     Active Substance: SITAGLIPTIN PHOSPHATE
     Indication: TYPE 2 DIABETES MELLITUS
     Route: 048
     Dates: start: 20090629
  2. CHOLECALCIFEROL [Concomitant]
     Active Substance: CHOLECALCIFEROL
  3. VITAMIN D [Concomitant]
     Active Substance: CHOLECALCIFEROL
     Route: 048
     Dates: start: 20090717
  4. HYDROMORPHONE [Concomitant]
     Active Substance: HYDROMORPHONE
     Dates: start: 20120917
  5. CEFAZOLIN [Concomitant]
     Active Substance: CEFAZOLIN
     Dates: start: 20120912
  6. PROTONIX [Concomitant]
     Active Substance: PANTOPRAZOLE SODIUM
     Route: 048
     Dates: start: 20120912
  7. LISINOPRIL. [Concomitant]
     Active Substance: LISINOPRIL
  8. CINNAMON. [Concomitant]
     Active Substance: CINNAMON
     Dosage: ONE TABLET, TWICE A DAY
     Route: 048
     Dates: start: 20120912
  9. SIMETHICONE (DIMETHICONE) [Concomitant]
     Active Substance: DIMETHICONE
     Dates: start: 20120918
  10. SALSALATE. [Concomitant]
     Active Substance: SALSALATE
     Route: 048
     Dates: start: 20100930
  11. MELOXICAM. [Concomitant]
     Active Substance: MELOXICAM
     Route: 048
     Dates: start: 20100201
  12. GLIMEPIRIDE. [Concomitant]
     Active Substance: GLIMEPIRIDE
     Route: 048
     Dates: start: 20061223
  13. TYLENOL [Concomitant]
     Active Substance: ACETAMINOPHEN
     Route: 048
     Dates: start: 20120912
  14. TRAMADOL. [Concomitant]
     Active Substance: TRAMADOL
     Route: 048
     Dates: start: 20120912
  15. ACETAMINOPHENE [Concomitant]
     Dates: start: 20120917
  16. METHYLNALTREXONE [Concomitant]
     Active Substance: METHYLNALTREXONE
     Dates: start: 20120912
  17. FLUCONAZOLE. [Concomitant]
     Active Substance: FLUCONAZOLE
     Route: 048
     Dates: start: 20090629
  18. HEPARIN [Concomitant]
     Active Substance: HEPARIN SODIUM
     Dates: start: 20120917
  19. BYETTA [Suspect]
     Active Substance: EXENATIDE
     Indication: TYPE 2 DIABETES MELLITUS
     Dosage: UNK
     Route: 065
     Dates: start: 20060627, end: 20071205
  20. JANUVIA [Suspect]
     Active Substance: SITAGLIPTIN PHOSPHATE
     Indication: TYPE 2 DIABETES MELLITUS
     Route: 065
     Dates: start: 20090323, end: 20090824
  21. METFORMIN HCL [Concomitant]
     Active Substance: METFORMIN HYDROCHLORIDE
     Route: 048
     Dates: start: 20120419
  22. MOTRIN [Concomitant]
     Active Substance: IBUPROFEN
     Route: 048
     Dates: start: 20120112
  23. CEPHALEXIN. [Concomitant]
     Active Substance: CEPHALEXIN
     Route: 065
  24. HYDROCHLOROTHIAZIDE. [Concomitant]
     Active Substance: HYDROCHLOROTHIAZIDE
     Route: 048
     Dates: start: 20120112
  25. OXYCODONE [Concomitant]
     Active Substance: OXYCODONE
     Route: 048
     Dates: start: 20120912
  26. LORAZEPAM. [Concomitant]
     Active Substance: LORAZEPAM
     Route: 065
     Dates: start: 20130904
  27. BYETTA [Suspect]
     Active Substance: EXENATIDE
     Indication: TYPE 2 DIABETES MELLITUS
     Route: 065
     Dates: start: 20061223
  28. FISH OIL [Concomitant]
     Active Substance: FISH OIL
     Dosage: ONE TABLET DAILY
     Route: 048
     Dates: start: 20121220
  29. POTASSIUM [Concomitant]
     Active Substance: POTASSIUM
     Dosage: ONE TABLET DAILY
     Route: 048
     Dates: start: 20121220
  30. GLUCOTROL XL [Concomitant]
     Active Substance: GLIPIZIDE
     Route: 048
     Dates: start: 20120522
  31. ACTOS [Concomitant]
     Active Substance: PIOGLITAZONE HYDROCHLORIDE
  32. IPRATROPIUM [Concomitant]
     Active Substance: IPRATROPIUM
     Dates: start: 20120917
  33. BYETTA [Suspect]
     Active Substance: EXENATIDE
     Indication: TYPE 2 DIABETES MELLITUS
     Route: 065
     Dates: start: 20060630
  34. JANUVIA [Suspect]
     Active Substance: SITAGLIPTIN PHOSPHATE
     Indication: TYPE 2 DIABETES MELLITUS
     Route: 048
     Dates: start: 20090324
  35. VITAMIN D3 [Concomitant]
     Active Substance: CHOLECALCIFEROL
     Route: 048
     Dates: start: 20121220
  36. LISINOPRIL-HYDROCHLOROTHIAZIDE [Concomitant]
     Active Substance: HYDROCHLOROTHIAZIDE\LISINOPRIL
     Dosage: 10-12.5 MG, EVERY DAY
     Route: 048
     Dates: start: 20061223
  37. DOCUSATE [Concomitant]
     Active Substance: DOCUSATE
     Dates: start: 20120917

REACTIONS (4)
  - Pancreatitis [Unknown]
  - Pancreatic mass [Unknown]
  - Pancreatic neuroendocrine tumour [Unknown]
  - Drug hypersensitivity [Unknown]

NARRATIVE: CASE EVENT DATE: 20120815
